FAERS Safety Report 5122730-9 (Version None)
Quarter: 2006Q4

REPORT INFORMATION
  Report Type: 
  Country: None (occurrence: None)
  Receive Date: 20061005
  Receipt Date: 20061005
  Transmission Date: 20070319
  Serious: Yes (Other)
  Sender: FDA-Public Use
  Company Number: None

PATIENT
  Sex: Male
  Weight: 77.5651 kg

DRUGS (1)
  1. PARAPLATIN [Suspect]
     Dosage: 370MG EVERY 21 DAYS IV
     Route: 042
     Dates: start: 20060719, end: 20060913

REACTIONS (5)
  - BLOOD PRESSURE INCREASED [None]
  - CHEST PAIN [None]
  - FLUSHING [None]
  - HEART RATE INCREASED [None]
  - RESPIRATORY DISTRESS [None]
